FAERS Safety Report 18265008 (Version 1)
Quarter: 2020Q3

REPORT INFORMATION
  Report Type: Not Available
  Country: NL (occurrence: NL)
  Receive Date: 20200914
  Receipt Date: 20200914
  Transmission Date: 20201103
  Serious: Yes (Hospitalization, Other)
  Sender: FDA-Public Use
  Company Number: NL-JNJFOC-20200915546

PATIENT

DRUGS (2)
  1. TRACLEER [Suspect]
     Active Substance: BOSENTAN
     Indication: BEHCET^S SYNDROME
     Route: 048
  2. THALIDOMIDE [Concomitant]
     Active Substance: THALIDOMIDE

REACTIONS (6)
  - Drug ineffective [Not Recovered/Not Resolved]
  - Vasculitis [Unknown]
  - Off label use [Unknown]
  - Product use in unapproved indication [Unknown]
  - Sinusitis [Recovered/Resolved]
  - Depression [Not Recovered/Not Resolved]
